FAERS Safety Report 9490779 (Version 2)
Quarter: 2014Q2

REPORT INFORMATION
  Report Type: Spontaneous
  Country: US (occurrence: US)
  Receive Date: 20130830
  Receipt Date: 20140501
  Transmission Date: 20141212
  Serious: Yes (Hospitalization)
  Sender: FDA-Public Use
  Company Number: US-BAYER-2013-105143

PATIENT
  Age: 36 Year
  Sex: Female
  Weight: 48.98 kg

DRUGS (10)
  1. MIRENA [Suspect]
     Indication: CONTRACEPTION
     Dosage: 20 MCG/24HR, CONT
     Route: 015
     Dates: start: 20041203
  2. ROCEPHIN [Concomitant]
  3. AZITHROMYCIN [Concomitant]
  4. METRONIDAZOLE [Concomitant]
  5. DOXYCYCLINE HYCLATE [Concomitant]
  6. LOVENOX [Concomitant]
  7. LORTAB [Concomitant]
  8. LEVAQUIN [Concomitant]
  9. CLINDAMYCIN [Concomitant]
  10. ULTRAM [Concomitant]

REACTIONS (5)
  - Medical device pain [None]
  - Infection [None]
  - Uterine perforation [None]
  - Device misuse [None]
  - Device issue [None]
